FAERS Safety Report 4472839-8 (Version None)
Quarter: 2004Q4

REPORT INFORMATION
  Report Type: 
  Country: None (occurrence: None)
  Receive Date: 20041012
  Receipt Date: 20041012
  Transmission Date: 20050328
  Serious: Yes (Hospitalization, Other)
  Sender: FDA-Public Use
  Company Number: None

PATIENT
  Sex: Female

DRUGS (2)
  1. MORPHINE [Suspect]
     Dosage: 2MG IV Q1PM
     Route: 042
  2. FENTANYL 10 MCG/ML = MARCAINE 0.1% EPIDURAL [Suspect]
     Dosage: 10 MCG/ML = MARCAINE 0.1% EPIDURAL
     Route: 008

REACTIONS (1)
  - RESPIRATORY ARREST [None]
